FAERS Safety Report 24133169 (Version 7)
Quarter: 2025Q2

REPORT INFORMATION
  Report Type: Report from Study
  Country: JP (occurrence: JP)
  Receive Date: 20240724
  Receipt Date: 20250516
  Transmission Date: 20250717
  Serious: Yes (Life-Threatening, Hospitalization)
  Sender: EMD SERONO INC
  Company Number: JP-Merck Healthcare KGaA-2024039034

PATIENT
  Age: 76 Year
  Sex: Female
  Weight: 61 kg

DRUGS (9)
  1. BAVENCIO [Suspect]
     Active Substance: AVELUMAB
     Indication: Metastatic renal cell carcinoma
     Dates: start: 20240717, end: 20240717
  2. INLYTA [Suspect]
     Active Substance: AXITINIB
     Indication: Metastatic renal cell carcinoma
     Dates: start: 20240717, end: 20240717
  3. MIROGABALIN BESYLATE [Concomitant]
     Active Substance: MIROGABALIN BESYLATE
     Indication: Product used for unknown indication
  4. METHYLCOBALAMIN [Concomitant]
     Active Substance: METHYLCOBALAMIN
     Indication: Product used for unknown indication
  5. EDOXABAN TOSYLATE [Concomitant]
     Active Substance: EDOXABAN TOSYLATE
     Indication: Product used for unknown indication
  6. TELMISARTAN [Concomitant]
     Active Substance: TELMISARTAN
     Indication: Product used for unknown indication
  7. PITAVASTATIN [Concomitant]
     Active Substance: PITAVASTATIN
     Indication: Product used for unknown indication
  8. ACETAMINOPHEN [Concomitant]
     Active Substance: ACETAMINOPHEN
     Indication: Premedication
  9. DIPHENHYDRAMINE HYDROCHLORIDE [Concomitant]
     Active Substance: DIPHENHYDRAMINE HYDROCHLORIDE
     Indication: Premedication

REACTIONS (4)
  - Acute respiratory distress syndrome [Recovering/Resolving]
  - Cytokine release syndrome [Recovering/Resolving]
  - Infusion related reaction [Recovering/Resolving]
  - Coronavirus pneumonia [Recovered/Resolved]

NARRATIVE: CASE EVENT DATE: 20240717
